FAERS Safety Report 4747634-2 (Version None)
Quarter: 2005Q3

REPORT INFORMATION
  Report Type: 
  Country: None (occurrence: None)
  Receive Date: 20050818
  Receipt Date: 20050308
  Transmission Date: 20060218
  Serious: No
  Sender: FDA-Public Use
  Company Number: US-BRISTOL-MYERS SQUIBB COMPANY-12889556

PATIENT
  Age: 79 Year
  Sex: Male
  Weight: 68 kg

DRUGS (5)
  1. TEQUIN [Suspect]
     Indication: RESPIRATORY TRACT INFECTION
     Route: 048
     Dates: start: 20041218, end: 20041222
  2. ATENOLOL [Concomitant]
  3. AVALIDE [Concomitant]
  4. FELODIPINE [Concomitant]
  5. NEXIUM [Concomitant]

REACTIONS (2)
  - AGEUSIA [None]
  - ANOSMIA [None]
